FAERS Safety Report 4993944-3 (Version None)
Quarter: 2006Q2

REPORT INFORMATION
  Report Type: 
  Country: None (occurrence: None)
  Receive Date: 20060505
  Receipt Date: 20060501
  Transmission Date: 20061013
  Serious: Yes (Death)
  Sender: FDA-Public Use
  Company Number: CA-GLAXOSMITHKLINE-A0604043A

PATIENT
  Age: 87 Year
  Sex: Male

DRUGS (13)
  1. AVANDIA [Suspect]
     Indication: DRUG USE FOR UNKNOWN INDICATION
     Dosage: 4MG UNKNOWN
     Route: 048
  2. APO FUROSEMIDE [Concomitant]
  3. CELEBREX [Concomitant]
  4. INFLUENZA VACCINE [Concomitant]
  5. GLICLAZIDE [Concomitant]
  6. NITRO-DUR [Concomitant]
  7. NITROGLYCERIN [Concomitant]
  8. NORVASC [Concomitant]
  9. NOVASEN [Concomitant]
  10. ATENOLOL [Concomitant]
  11. METFORMIN [Concomitant]
  12. SAB [Concomitant]
     Route: 047
  13. SIMVASTATIN [Concomitant]

REACTIONS (4)
  - CARDIAC DISORDER [None]
  - CHILLS [None]
  - INFLUENZA LIKE ILLNESS [None]
  - MYOCARDIAL INFARCTION [None]
